FAERS Safety Report 9801986 (Version 3)
Quarter: 2014Q2

REPORT INFORMATION
  Report Type: Report from Study
  Country: US (occurrence: US)
  Receive Date: 20140107
  Receipt Date: 20140509
  Transmission Date: 20141212
  Serious: Yes (Death, Hospitalization, Other)
  Sender: FDA-Public Use
  Company Number: US-ABBVIE-14P-163-1186946-00

PATIENT
  Age: 64 Year
  Sex: Female

DRUGS (19)
  1. CREON [Suspect]
     Indication: PANCREATIC CARCINOMA
     Route: 048
     Dates: end: 20131213
  2. CREON [Suspect]
     Route: 048
     Dates: start: 20131216, end: 20131223
  3. LOVENOX [Concomitant]
     Indication: ANTICOAGULANT THERAPY
     Route: 058
     Dates: end: 20131213
  4. LOVENOX [Concomitant]
     Route: 058
     Dates: start: 20131216, end: 20131224
  5. VISTARIL [Concomitant]
     Indication: PAIN
     Dosage: 4 TIMES PER DAY
     Route: 048
     Dates: end: 20131213
  6. ANTIVERT [Concomitant]
     Indication: VERTIGO
     Dosage: EVERY 8 HRS
     Dates: end: 20131213
  7. NOVOLIN [Concomitant]
     Indication: DIABETES MELLITUS
     Dosage: DAILY
     Route: 058
     Dates: end: 20131213
  8. LOPRESSOR [Concomitant]
     Indication: HYPERTENSION
     Route: 048
     Dates: end: 20131213
  9. LOPRESSOR [Concomitant]
     Route: 048
     Dates: start: 20131216, end: 20131223
  10. PROTONIX [Concomitant]
     Indication: GASTROINTESTINAL DISORDER
     Dosage: DAILY
     Route: 048
     Dates: end: 20131213
  11. PROTONIX [Concomitant]
     Dosage: DAILY
     Route: 048
     Dates: start: 20131216, end: 20131223
  12. KLOR-CON [Concomitant]
     Indication: SUPPLEMENTATION THERAPY
     Route: 048
     Dates: end: 20131213
  13. ULTRAM [Concomitant]
     Indication: PAIN
     Dosage: EVERY 8 HRS
     Dates: end: 20131213
  14. TRAVATAN [Concomitant]
     Indication: PRODUCT USED FOR UNKNOWN INDICATION
     Dosage: AT BEDTIME
     Route: 047
     Dates: end: 20131213
  15. AMBIEN [Concomitant]
     Indication: INSOMNIA
     Dosage: BEDTIME
     Route: 048
     Dates: end: 20131213
  16. ATIVAN [Concomitant]
     Indication: ANXIETY
     Dosage: PO/SL EVERY 6 HRS
     Dates: start: 20131216, end: 20131223
  17. ATIVAN [Concomitant]
     Dosage: BY PO/SL Q 4 HRS
     Dates: start: 20131223, end: 20131226
  18. RESTORIL [Concomitant]
     Indication: INSOMNIA
     Dosage: BEDTIME
     Route: 048
     Dates: start: 20131216, end: 20131223
  19. DUONEB [Concomitant]
     Indication: PRODUCT USED FOR UNKNOWN INDICATION
     Dosage: 1 NEBULE BY INHALATION EVERY 4 HRS
     Route: 055
     Dates: start: 20131217, end: 20131226

REACTIONS (12)
  - Pancreatic carcinoma [Fatal]
  - Nausea [Fatal]
  - Vomiting [Fatal]
  - Dehydration [Unknown]
  - Intestinal obstruction [Unknown]
  - Oedema peripheral [Unknown]
  - Dyspnoea [Unknown]
  - Pain [Unknown]
  - Constipation [Unknown]
  - Pyrexia [Unknown]
  - Agitation [Unknown]
  - Restlessness [Unknown]
